FAERS Safety Report 13010305 (Version 1)
Quarter: 2016Q4

REPORT INFORMATION
  Report Type: Spontaneous
  Country: US (occurrence: US)
  Receive Date: 20161207
  Receipt Date: 20161207
  Transmission Date: 20170207
  Serious: Yes (Other)
  Sender: FDA-Public Use
  Company Number: None

PATIENT
  Age: 39 Year
  Sex: Female

DRUGS (1)
  1. KENALOG [Suspect]
     Active Substance: TRIAMCINOLONE ACETONIDE
     Indication: HYPERSENSITIVITY
     Route: 058
     Dates: start: 20160531

REACTIONS (4)
  - Injection site reaction [None]
  - Injection site pain [None]
  - Lipoatrophy [None]
  - Marital problem [None]

NARRATIVE: CASE EVENT DATE: 20160531
